FAERS Safety Report 8837609 (Version 2)
Quarter: 2014Q4

REPORT INFORMATION
  Report Type: Report from Study
  Country: ZA (occurrence: ZA)
  Receive Date: 20121012
  Receipt Date: 20141017
  Transmission Date: 20150529
  Serious: Yes (Other)
  Sender: FDA-Public Use
  Company Number: PHHY2012ZA090034

PATIENT
  Sex: Female

DRUGS (1)
  1. ESTRADERM [Suspect]
     Active Substance: ESTRADIOL
     Indication: HORMONE REPLACEMENT THERAPY
     Route: 062
     Dates: start: 1987

REACTIONS (8)
  - Osteoporosis [Unknown]
  - Pernicious anaemia [Unknown]
  - Meniere^s disease [Unknown]
  - Asthma [Unknown]
  - Cerebrovascular accident [Unknown]
  - Diverticulitis [Unknown]
  - Deafness [Unknown]
  - Gout [Unknown]

NARRATIVE: CASE EVENT DATE: 1995
